FAERS Safety Report 12619140 (Version 1)
Quarter: 2016Q3

REPORT INFORMATION
  Report Type: Spontaneous
  Country: BR (occurrence: BR)
  Receive Date: 20160803
  Receipt Date: 20160803
  Transmission Date: 20161109
  Serious: Yes (Disabling, Other)
  Sender: FDA-Public Use
  Company Number: BR-GLAXOSMITHKLINE-BR2016GSK110626

PATIENT
  Age: 53 Year
  Sex: Female
  Weight: 84 kg

DRUGS (5)
  1. SERETIDE [Suspect]
     Active Substance: FLUTICASONE PROPIONATE\SALMETEROL XINAFOATE
     Indication: ASTHMA
     Dosage: 2 PUFF(S), BID
     Route: 055
  2. AEROLIN [Suspect]
     Active Substance: ALBUTEROL
     Indication: ASTHMA
  3. RIVOTRIL [Concomitant]
     Active Substance: CLONAZEPAM
     Indication: SLEEP DISORDER
     Dosage: 2.5 MG, QD AT NIGHT
  4. LEVOTHYROXINE SODIUM. [Concomitant]
     Active Substance: LEVOTHYROXINE SODIUM
     Indication: THYROID DISORDER
     Dosage: 1 DF, UNK
  5. ATROVENT [Suspect]
     Active Substance: IPRATROPIUM BROMIDE

REACTIONS (23)
  - Neuropathy peripheral [Unknown]
  - Rhinitis [Unknown]
  - Depression [Unknown]
  - Breast cancer [Unknown]
  - Respiratory disorder [Recovered/Resolved]
  - Mastectomy [Unknown]
  - Sinusitis [Unknown]
  - Tremor [Unknown]
  - Spinal operation [Unknown]
  - Mobility decreased [Unknown]
  - Kyphosis [Unknown]
  - Back injury [Unknown]
  - Fall [Unknown]
  - Asthmatic crisis [Unknown]
  - Cough [Unknown]
  - Cervix carcinoma [Unknown]
  - Spinal fracture [Unknown]
  - Kyphosis postoperative [Unknown]
  - Hysterectomy [Unknown]
  - Wheezing [Unknown]
  - Syncope [Unknown]
  - Cardiac disorder [Unknown]
  - Walking aid user [Unknown]

NARRATIVE: CASE EVENT DATE: 20120908
